FAERS Safety Report 5927399-9 (Version None)
Quarter: 2008Q4

REPORT INFORMATION
  Report Type: 
  Country: None (occurrence: None)
  Receive Date: 20081021
  Receipt Date: 20081021
  Transmission Date: 20090506
  Serious: No
  Sender: FDA-Public Use
  Company Number: None

PATIENT
  Age: 61 Year
  Sex: Female
  Weight: 48.5349 kg

DRUGS (1)
  1. BUPROPION HCL [Suspect]
     Indication: DEPRESSION
     Dosage: 1 PILL 1XD ORAL
     Route: 048
     Dates: start: 20070101, end: 20080101

REACTIONS (2)
  - DEPRESSION [None]
  - MEDICATION RESIDUE [None]
